FAERS Safety Report 4310830-2 (Version None)
Quarter: 2004Q1

REPORT INFORMATION
  Report Type: 
  Country: None (occurrence: None)
  Receive Date: 20040302
  Receipt Date: 20040218
  Transmission Date: 20041129
  Serious: Yes (Other)
  Sender: FDA-Public Use
  Company Number: JP-JNJFOC-20040202647

PATIENT
  Age: 65 Year
  Sex: Female

DRUGS (1)
  1. BEPRIDIL (BEPRIDIL HYDROCHLORIDE MONOHYDRATE) TABLETS [Suspect]
     Indication: PROPHYLAXIS
     Dosage: 200 MG, 1 IN 1 DAY, ORAL
     Route: 048
     Dates: start: 20030315

REACTIONS (9)
  - ATRIAL FIBRILLATION [None]
  - ATRIAL FLUTTER [None]
  - BRADYCARDIA [None]
  - CONVULSION [None]
  - SICK SINUS SYNDROME [None]
  - SINUS ARREST [None]
  - TORSADE DE POINTES [None]
  - VENTRICULAR EXTRASYSTOLES [None]
  - VENTRICULAR FIBRILLATION [None]
